FAERS Safety Report 18009070 (Version 1)
Quarter: 2020Q3

REPORT INFORMATION
  Report Type: Spontaneous
  Country: US (occurrence: US)
  Receive Date: 20200710
  Receipt Date: 20200710
  Transmission Date: 20201103
  Serious: Yes (Death, Hospitalization, Other)
  Sender: FDA-Public Use
  Company Number: US-SAOL THERAPEUTICS-2019SAO00455

PATIENT
  Age: 59 Year
  Sex: Female

DRUGS (19)
  1. NORCO [Concomitant]
     Active Substance: ACETAMINOPHEN\HYDROCODONE BITARTRATE
     Dosage: 1 TABLETS, 2X/DAY; AS NEEDED FOR PAIN
  2. FLUOXETINE [Concomitant]
     Active Substance: FLUOXETINE HYDROCHLORIDE
     Dosage: 2.5 ML, 1X/DAY; VIA PEG TUBE EVERY MORNING
     Route: 048
  3. ACETAMINOPHEN. [Concomitant]
     Active Substance: ACETAMINOPHEN
     Dosage: 20 ML, 6X/DAY EVERY 4 HOURS AS NEEDED FOR PAIN
     Route: 048
  4. SODIUM BIPHOSPHATE?SODIUM PHOSTATE DISPOSABLE ENEMA [Concomitant]
     Dosage: 1 DOSAGE UNITS, 1X/DAY
     Route: 054
  5. HOUSE ANTICID [Concomitant]
     Dosage: 30 ML, AS NEEDED FOR GI UPSET
     Route: 048
  6. ASCORBIC ACID. [Concomitant]
     Active Substance: ASCORBIC ACID
     Dosage: 250 MG, 1X/DAY
     Route: 048
  7. AMOXICILLIN?CLAVULANATE [Concomitant]
     Active Substance: AMOXICILLIN\CLAVULANIC ACID
     Dosage: 5 ML, 2X/DAY; EVERY 12 HOURS
     Route: 048
  8. FERROUS SULFATE. [Concomitant]
     Active Substance: FERROUS SULFATE
     Dosage: 330 MG, 2X/DAY
     Route: 048
  9. METOCLOPRAMIDE. [Concomitant]
     Active Substance: METOCLOPRAMIDE
     Dosage: 1 DOSAGE UNITS, 3X/DAY FOR NAUSEA
  10. ZINC CITRATE [Concomitant]
     Active Substance: ZINC CITRATE
     Dosage: 50 MG, 1X/DAY
     Route: 048
  11. RANITIDINE. [Concomitant]
     Active Substance: RANITIDINE
     Dosage: 150 MG, 2X/DAY
     Route: 048
  12. SENNA [Concomitant]
     Active Substance: SENNA LEAF\SENNOSIDES\SENNOSIDES A AND B
     Dosage: 8.6 MG
     Route: 048
  13. TNF?MED (TNF?NON FORMULARY MED)/JEVITY [Concomitant]
     Dosage: JEVITY 1 CAL 55 ML/HR VIA PEG?TUBE
     Route: 048
  14. MILK OF MAGNESIA [Concomitant]
     Active Substance: MAGNESIUM HYDROXIDE
     Dosage: 30 ML, 1X/DAY EVERY 24 HOURS AS NEEDED FOR CONSTIPATION
     Route: 048
  15. ONDANSETRON [Concomitant]
     Active Substance: ONDANSETRON
     Dosage: 4 MG, 4X/DAY AS NEEDED FOR NAUSEA
     Route: 048
  16. LIORESAL [Suspect]
     Active Substance: BACLOFEN
     Indication: CEREBRAL PALSY
     Dosage: 369.8 ?G/DAY
     Route: 037
  17. LIORESAL [Suspect]
     Active Substance: BACLOFEN
     Indication: MUSCLE SPASTICITY
  18. BISACODYL. [Concomitant]
     Active Substance: BISACODYL
     Dosage: 10 MG, 1X/DAY
     Route: 054
  19. LIDOCAINE TOPICAL CREAM [Concomitant]
     Dosage: 1 DOSAGE UNITS, 3X/DAY AS NEEDED FOR DEBRIDEMENT OF STAGE 4 WOUND
     Route: 061

REACTIONS (6)
  - Hypotension [Unknown]
  - Respiratory failure [Unknown]
  - Escherichia urinary tract infection [Unknown]
  - Device infusion issue [Unknown]
  - Death [Fatal]
  - Unresponsive to stimuli [Unknown]

NARRATIVE: CASE EVENT DATE: 2019
